FAERS Safety Report 19948483 (Version 1)
Quarter: 2021Q4

REPORT INFORMATION
  Report Type: Report from Study
  Country: AR (occurrence: AR)
  Receive Date: 20211013
  Receipt Date: 20211013
  Transmission Date: 20220303
  Serious: Yes (Other)
  Sender: FDA-Public Use
  Company Number: AR-NOVARTISPH-NVSC2021AR232719

PATIENT
  Sex: Female

DRUGS (1)
  1. EXFORGE [Suspect]
     Active Substance: AMLODIPINE BESYLATE\VALSARTAN
     Indication: Hypertension
     Dosage: 1 DF (AMLODIPINE: 5 MG AND VALSARTAN: 160 MG), QD
     Route: 065

REACTIONS (2)
  - Arrhythmia [Recovered/Resolved]
  - Malaise [Recovered/Resolved]
